FAERS Safety Report 16717859 (Version 1)
Quarter: 2019Q3

REPORT INFORMATION
  Report Type: Spontaneous
  Country: CN (occurrence: CN)
  Receive Date: 20190819
  Receipt Date: 20190819
  Transmission Date: 20191005
  Serious: Yes (Other)
  Sender: FDA-Public Use
  Company Number: CN-ALLERGAN-1933541US

PATIENT
  Sex: Female
  Weight: 1.75 kg

DRUGS (1)
  1. URSODEOXYCHOLIC ACID UNK [Suspect]
     Active Substance: URSODIOL
     Indication: MATERNAL EXPOSURE TIMING UNSPECIFIED
     Dosage: UNK, UNKNOWN
     Route: 064

REACTIONS (2)
  - Total bile acids increased [Unknown]
  - Premature baby [Unknown]
